FAERS Safety Report 5166868-9 (Version None)
Quarter: 2006Q4

REPORT INFORMATION
  Report Type: 
  Country: None (occurrence: None)
  Receive Date: 20061207
  Receipt Date: 20061128
  Transmission Date: 20070319
  Serious: Yes (Hospitalization, Other)
  Sender: FDA-Public Use
  Company Number: US-ELI_LILLY_AND_COMPANY-US200611005039

PATIENT
  Age: 55 Year
  Sex: Male

DRUGS (2)
  1. HUMULIN 70/30 [Suspect]
     Indication: DIABETES MELLITUS
     Dosage: 75 U, EACH MORNING
     Dates: start: 20030101
  2. HUMULIN 70/30 [Suspect]
     Dosage: 25 U, EACH EVENING

REACTIONS (7)
  - ANXIETY [None]
  - BLINDNESS [None]
  - CEREBROVASCULAR ACCIDENT [None]
  - DYSPEPSIA [None]
  - HEART VALVE REPLACEMENT [None]
  - RETINAL DETACHMENT [None]
  - VISUAL DISTURBANCE [None]
